FAERS Safety Report 7106586-0 (Version None)
Quarter: 2010Q4

REPORT INFORMATION
  Report Type: 
  Country: None (occurrence: None)
  Receive Date: 20101116
  Receipt Date: 20101111
  Transmission Date: 20110411
  Serious: No
  Sender: FDA-Public Use
  Company Number: US-ABBOTT-10P-163-0684862-00

PATIENT
  Sex: Female
  Weight: 59.928 kg

DRUGS (3)
  1. SIMCOR [Suspect]
     Indication: DYSLIPIDAEMIA
     Dosage: 500/20MG AT BEDTIME
     Route: 048
     Dates: start: 20091101
  2. INSULIN [Concomitant]
     Indication: PRODUCT USED FOR UNKNOWN INDICATION
     Dosage: PUMP
  3. IBUPROFEN [Concomitant]
     Indication: PRODUCT USED FOR UNKNOWN INDICATION
     Dosage: 30 MINUTES BEFORE SIMCOR
     Route: 048

REACTIONS (6)
  - DYSPEPSIA [None]
  - FEELING HOT [None]
  - FLUSHING [None]
  - GASTRITIS [None]
  - HELICOBACTER INFECTION [None]
  - PRURITUS GENERALISED [None]
